FAERS Safety Report 20790514 (Version 1)
Quarter: 2022Q2

REPORT INFORMATION
  Report Type: Spontaneous
  Country: FR (occurrence: FR)
  Receive Date: 20220505
  Receipt Date: 20220505
  Transmission Date: 20220721
  Serious: Yes (Hospitalization)
  Sender: FDA-Public Use
  Company Number: None

PATIENT
  Age: 36 Year
  Sex: Male
  Weight: 94 kg

DRUGS (2)
  1. VINCRISTINE [Suspect]
     Active Substance: VINCRISTINE
     Indication: Acute lymphocytic leukaemia (in remission)
     Dosage: 1X/MONTH , VINCRISTINE (SULFATE DE) , DURATION : 56 DAYS
     Route: 041
     Dates: start: 20201119, end: 20210114
  2. DASATINIB [Suspect]
     Active Substance: DASATINIB
     Indication: Acute lymphocytic leukaemia (in remission)
     Dosage: 140 MILLIGRAM DAILY; 70 MG 2/ DAY , DURATION : 56 DAYS
     Route: 041
     Dates: start: 20201119, end: 20210316

REACTIONS (1)
  - Colitis [Recovered/Resolved]

NARRATIVE: CASE EVENT DATE: 20210208
